FAERS Safety Report 8972515 (Version 1)
Quarter: 2012Q4

REPORT INFORMATION
  Report Type: 
  Country: US (occurrence: US)
  Receive Date: 20121219
  Receipt Date: 20121219
  Transmission Date: 20130627
  Serious: No
  Sender: FDA-Public Use
  Company Number: US-ABBOTT-12P-163-1002004-00

PATIENT
  Sex: Male
  Weight: 70.37 kg

DRUGS (4)
  1. ADVICOR [Suspect]
     Indication: BLOOD CHOLESTEROL INCREASED
  2. ZETIA [Concomitant]
     Indication: PRODUCT USED FOR UNKNOWN INDICATION
  3. RAMAPRIL [Concomitant]
     Indication: HYPERTENSION
  4. ASA [Concomitant]
     Indication: PRODUCT USED FOR UNKNOWN INDICATION
     Dosage: 81mg daily

REACTIONS (1)
  - Flushing [Recovered/Resolved]
